FAERS Safety Report 9421150 (Version 1)
Quarter: 2013Q3

REPORT INFORMATION
  Report Type: Spontaneous
  Country: US (occurrence: US)
  Receive Date: 20130725
  Receipt Date: 20130725
  Transmission Date: 20140515
  Serious: Yes (Other)
  Sender: FDA-Public Use
  Company Number: PHHY2012US027232

PATIENT
  Age: 57 Year
  Sex: Male

DRUGS (5)
  1. BACLOFEN INTRATHECAL [Suspect]
     Indication: PAIN
     Dosage: 1000 UG/ML
     Route: 037
  2. BACLOFEN INTRATHECAL [Suspect]
     Dosage: 555 UG
     Route: 037
  3. BACLOFEN INTRATHECAL [Suspect]
     Dosage: 225 UG, QD
     Route: 039
  4. METHOTREXATE SODIUM [Suspect]
  5. CLONIDINE HCL TABLETS USP [Suspect]
     Dosage: 3000 UG/ML
     Route: 037

REACTIONS (12)
  - Tremor [Recovered/Resolved]
  - Back pain [Recovered/Resolved]
  - Hyperhidrosis [Recovered/Resolved]
  - Musculoskeletal stiffness [Unknown]
  - Fatigue [Recovered/Resolved]
  - Headache [Recovered/Resolved]
  - Pyrexia [Recovered/Resolved]
  - Nausea [Recovered/Resolved]
  - Pain [Recovered/Resolved]
  - Chills [Recovered/Resolved]
  - Drug withdrawal syndrome [Unknown]
  - Insomnia [Unknown]
